FAERS Safety Report 5823786-8 (Version None)
Quarter: 2008Q3

REPORT INFORMATION
  Report Type: 
  Country: None (occurrence: None)
  Receive Date: 20080725
  Receipt Date: 20080714
  Transmission Date: 20090109
  Serious: Yes (Hospitalization)
  Sender: FDA-Public Use
  Company Number: US-MERCK-0612USA00588

PATIENT
  Age: 79 Year
  Sex: Female
  Weight: 113 kg

DRUGS (11)
  1. ZETIA [Suspect]
     Indication: HYPERLIPIDAEMIA
     Route: 048
     Dates: start: 20040101, end: 20061120
  2. ZETIA [Suspect]
     Indication: BLOOD CHOLESTEROL
     Route: 048
     Dates: start: 20040101, end: 20061120
  3. TIAZAC [Concomitant]
     Route: 048
  4. DIOVAN [Concomitant]
     Route: 048
  5. CLARINEX [Concomitant]
     Route: 065
  6. ALBUTEROL [Concomitant]
     Route: 065
  7. IMDUR [Concomitant]
     Route: 048
  8. LASIX [Concomitant]
     Route: 048
  9. PLAVIX [Concomitant]
     Route: 048
  10. FLONASE [Concomitant]
     Route: 065
  11. LOTREL [Concomitant]
     Route: 048

REACTIONS (10)
  - ABDOMINAL PAIN UPPER [None]
  - BACK PAIN [None]
  - CONSTIPATION [None]
  - DYSPNOEA [None]
  - FEELING ABNORMAL [None]
  - HOT FLUSH [None]
  - MUSCLE SPASTICITY [None]
  - OEDEMA PERIPHERAL [None]
  - PAIN IN EXTREMITY [None]
  - SWOLLEN TONGUE [None]
